FAERS Safety Report 5434245-9 (Version None)
Quarter: 2007Q3

REPORT INFORMATION
  Report Type: 
  Country: None (occurrence: None)
  Receive Date: 20070829
  Receipt Date: 20070814
  Transmission Date: 20080115
  Serious: Yes (Death)
  Sender: FDA-Public Use
  Company Number: 144-C5013-07081503

PATIENT
  Age: 57 Year
  Sex: Female

DRUGS (7)
  1. CC-5013 (LENALIDOMIDE) (CAPSULES) [Suspect]
     Indication: MULTIPLE MYELOMA
     Dosage: 25 MG, DAILY, ORAL
     Route: 048
     Dates: start: 20070214, end: 20070715
  2. FLUCONAZOLE (FLUCONAZOLE)(OINTMENT) [Concomitant]
  3. EPOETIN-BETA (NEORECORMON)(EPOETIN BETA) [Concomitant]
  4. OMEPRAZOLE [Concomitant]
  5. ACYCLOVIR [Concomitant]
  6. NEURONTIN [Concomitant]
  7. ZYLORIC (ALLOPURINOL) `C(ALLOPURINOL) [Concomitant]

REACTIONS (9)
  - HAEMATURIA [None]
  - MALIGNANT NEOPLASM PROGRESSION [None]
  - MELAENA [None]
  - MULTIPLE MYELOMA [None]
  - NEUTROPENIA [None]
  - PNEUMONIA ASPIRATION [None]
  - SEPSIS [None]
  - THROMBOCYTOPENIA [None]
  - UPPER GASTROINTESTINAL HAEMORRHAGE [None]
